FAERS Safety Report 16098457 (Version 3)
Quarter: 2019Q2

REPORT INFORMATION
  Report Type: Report from Study
  Country: US (occurrence: US)
  Receive Date: 20190321
  Receipt Date: 20190522
  Transmission Date: 20190711
  Serious: Yes (Other)
  Sender: FDA-Public Use
  Company Number: US-ROCHE-2285437

PATIENT
  Age: 50 Year
  Sex: Female
  Weight: 163.44 kg

DRUGS (2)
  1. OCREVUS [Suspect]
     Active Substance: OCRELIZUMAB
     Route: 042
     Dates: start: 20180815
  2. OCREVUS [Suspect]
     Active Substance: OCRELIZUMAB
     Indication: RELAPSING MULTIPLE SCLEROSIS
     Route: 042
     Dates: start: 20180829

REACTIONS (11)
  - Urinary tract infection [Recovered/Resolved]
  - Vaginal lesion [Not Recovered/Not Resolved]
  - Blood calcium increased [Unknown]
  - Parathyroid disorder [Unknown]
  - Blood glucose increased [Unknown]
  - Pyrexia [Recovered/Resolved]
  - Malaise [Recovered/Resolved]
  - Bronchitis [Recovering/Resolving]
  - Memory impairment [Unknown]
  - Vision blurred [Not Recovered/Not Resolved]
  - Diabetes mellitus [Recovering/Resolving]

NARRATIVE: CASE EVENT DATE: 201902
